FAERS Safety Report 5246577-8 (Version None)
Quarter: 2007Q1

REPORT INFORMATION
  Report Type: 
  Country: None (occurrence: None)
  Receive Date: 20070226
  Receipt Date: 20070212
  Transmission Date: 20070707
  Serious: Yes (Life-Threatening, Hospitalization)
  Sender: FDA-Public Use
  Company Number: DE-ROCHE-424932

PATIENT
  Age: 41 Year
  Sex: Female

DRUGS (4)
  1. PEG-INTERFERON ALFA 2A (RO 25-8310) [Suspect]
     Indication: HEPATITIS C
     Dosage: ADMINISTERED WEEKLY.
     Route: 058
     Dates: start: 20050923, end: 20051104
  2. PAROXETINE HCL [Concomitant]
     Indication: DEPRESSION
     Route: 048
     Dates: start: 20051020
  3. METHADONE HCL [Concomitant]
     Indication: DRUG WITHDRAWAL MAINTENANCE THERAPY
  4. REMERGIL [Concomitant]
     Dosage: FREQ: 0-0-1

REACTIONS (4)
  - CRUSH SYNDROME [None]
  - DEHYDRATION [None]
  - PULMONARY EMBOLISM [None]
  - RHABDOMYOLYSIS [None]
